FAERS Safety Report 8105576-9 (Version None)
Quarter: 2012Q1

REPORT INFORMATION
  Report Type: 
  Country: None (occurrence: None)
  Receive Date: 20120201
  Receipt Date: 20120118
  Transmission Date: 20120608
  Serious: Yes (Other)
  Sender: FDA-Public Use
  Company Number: US-ROCHE-1031837

PATIENT
  Sex: Female

DRUGS (5)
  1. VITAMIN D [Concomitant]
  2. BONIVA [Suspect]
     Indication: PRODUCT USED FOR UNKNOWN INDICATION
     Dates: end: 20090101
  3. CALCIUM NOS [Concomitant]
  4. MAGNESIUM OXIDE [Concomitant]
  5. MAGNESIUM [Concomitant]

REACTIONS (8)
  - TOOTH LOSS [None]
  - MUSCULOSKELETAL PAIN [None]
  - PAIN [None]
  - MUSCULOSKELETAL CHEST PAIN [None]
  - BLOOD DISORDER [None]
  - DEVICE DAMAGE [None]
  - DRUG INEFFECTIVE [None]
  - PAIN IN JAW [None]
